FAERS Safety Report 15889404 (Version 1)
Quarter: 2019Q1

REPORT INFORMATION
  Report Type: Spontaneous
  Country: US (occurrence: US)
  Receive Date: 20190130
  Receipt Date: 20190130
  Transmission Date: 20190417
  Serious: Yes (Hospitalization)
  Sender: FDA-Public Use
  Company Number: None

PATIENT
  Sex: Female

DRUGS (7)
  1. HUMIRA [Suspect]
     Active Substance: ADALIMUMAB
     Indication: RHEUMATOID ARTHRITIS
     Dosage: ?          OTHER FREQUENCY:EVERY OTHER WEEK;?
     Route: 058
     Dates: start: 20160331
  2. FOLIC ACID, AVAPRO, CELEBREX [Concomitant]
  3. PREMARIN [Concomitant]
     Active Substance: ESTROGENS, CONJUGATED
  4. PREDNISONE, METHOTREXATE [Concomitant]
  5. FENOFIBRATE, IRBESARTAN [Concomitant]
  6. ROSUVASTATIN, MELOXICAM [Concomitant]
  7. OS-CAL, FISH OIL, CRESTOR, RESTASIS [Concomitant]

REACTIONS (2)
  - Surgery [None]
  - Therapy cessation [None]
